FAERS Safety Report 5876409-6 (Version None)
Quarter: 2008Q3

REPORT INFORMATION
  Report Type: 
  Country: None (occurrence: None)
  Receive Date: 20080909
  Receipt Date: 20080909
  Transmission Date: 20090109
  Serious: Yes (Hospitalization)
  Sender: FDA-Public Use
  Company Number: None

PATIENT
  Sex: Female

DRUGS (11)
  1. ETOPOSIDE [Suspect]
     Indication: NEOPLASM MALIGNANT
     Dosage: QDAY
  2. COZAAR [Concomitant]
  3. EVISTA [Concomitant]
  4. ACTOS [Concomitant]
  5. TRICOR [Concomitant]
  6. CELEXA [Concomitant]
  7. VICODIN [Concomitant]
  8. XANAX [Concomitant]
  9. SPIRIVA [Concomitant]
  10. FENTANYL TRANSDERMAL SYSTEM [Concomitant]
  11. ASPIRIN [Concomitant]

REACTIONS (5)
  - ANAEMIA [None]
  - ASTHENIA [None]
  - FATIGUE [None]
  - PAIN [None]
  - TREMOR [None]
